FAERS Safety Report 9498509 (Version 1)
Quarter: 2013Q3

REPORT INFORMATION
  Report Type: Spontaneous
  Country: US (occurrence: None)
  Receive Date: 20130903
  Receipt Date: 20130903
  Transmission Date: 20140515
  Serious: Yes (Other)
  Sender: FDA-Public Use
  Company Number: None

PATIENT
  Age: 13 Year
  Sex: Female

DRUGS (1)
  1. QUETIAPINE [Suspect]
     Indication: PSYCHOTIC DISORDER
     Route: 048
     Dates: start: 20130426, end: 20130506

REACTIONS (7)
  - Dizziness postural [None]
  - Pruritus [None]
  - Blood pressure increased [None]
  - Heart rate increased [None]
  - Chest pain [None]
  - Headache [None]
  - Muscle rigidity [None]
